FAERS Safety Report 15369875 (Version 1)
Quarter: 2018Q3

REPORT INFORMATION
  Report Type: Spontaneous
  Country: ES (occurrence: ES)
  Receive Date: 20180911
  Receipt Date: 20180911
  Transmission Date: 20181010
  Serious: Yes (Hospitalization, Other)
  Sender: FDA-Public Use
  Company Number: ES-ALVOGEN-2018-ALVOGEN-097235

PATIENT
  Age: 58 Year
  Sex: Male

DRUGS (1)
  1. DOXORUBICIN [Suspect]
     Active Substance: DOXORUBICIN
     Indication: THYROID CANCER
     Dosage: 20 MG/M2

REACTIONS (5)
  - Therapy partial responder [Unknown]
  - Alopecia [Unknown]
  - Mucosal inflammation [Unknown]
  - Leukopenia [Unknown]
  - Anaemia [Unknown]
